FAERS Safety Report 4936541-8 (Version None)
Quarter: 2006Q1

REPORT INFORMATION
  Report Type: 
  Country: None (occurrence: None)
  Receive Date: 20060127
  Receipt Date: 20051108
  Transmission Date: 20060701
  Serious: Yes (Other)
  Sender: FDA-Public Use
  Company Number: 2005153544

PATIENT
  Age: 71 Year
  Sex: Female
  Weight: 44.4525 kg

DRUGS (5)
  1. LYRICA [Suspect]
     Indication: NEUROPATHY
     Dosage: 75 MG (75 MG, 1 IN 1 D), ORAL
     Route: 048
     Dates: start: 20051001, end: 20051001
  2. FLOVENT [Concomitant]
  3. SYMMETREL [Concomitant]
  4. SINEMET [Concomitant]
  5. XANAX [Concomitant]

REACTIONS (4)
  - DYSKINESIA [None]
  - DYSPNOEA [None]
  - PAIN [None]
  - TREMOR [None]
